FAERS Safety Report 12117939 (Version 2)
Quarter: 2016Q3

REPORT INFORMATION
  Report Type: Report from Study
  Country: NO (occurrence: NO)
  Receive Date: 20160226
  Receipt Date: 20160927
  Transmission Date: 20161109
  Serious: Yes (Hospitalization)
  Sender: FDA-Public Use
  Company Number: NO-009507513-1602NOR010741

PATIENT

DRUGS (3)
  1. SPRYCEL [Suspect]
     Active Substance: DASATINIB
     Indication: CHRONIC MYELOID LEUKAEMIA
     Dosage: 100 MG, QD, AS SINGLE DRUG FOR THREE MONTHS
  2. PEGINTRON [Suspect]
     Active Substance: PEGINTERFERON ALFA-2B
     Dosage: 25 MICROGRAM, QW, UNTIL M15
     Route: 058
  3. PEGINTRON [Suspect]
     Active Substance: PEGINTERFERON ALFA-2B
     Indication: CHRONIC MYELOID LEUKAEMIA
     Dosage: 15 MICROGRAM, QW, FROM END OF MONTH 3 (M3) TO M6
     Route: 058

REACTIONS (3)
  - Pyrexia [Unknown]
  - Malaise [Unknown]
  - Headache [Unknown]
